FAERS Safety Report 6815051-7 (Version None)
Quarter: 2010Q3

REPORT INFORMATION
  Report Type: 
  Country: None (occurrence: None)
  Receive Date: 20100702
  Receipt Date: 20091113
  Transmission Date: 20110219
  Serious: No
  Sender: FDA-Public Use
  Company Number: A0816996A

PATIENT
  Age: 54 Year
  Sex: Female

DRUGS (12)
  1. PARNATE [Suspect]
     Indication: DEPRESSION
     Dosage: 10MG PER DAY
     Route: 048
     Dates: start: 19970101
  2. FLAGYL [Suspect]
     Indication: INFECTION
     Route: 065
     Dates: start: 20091111
  3. BIAXIN [Suspect]
     Indication: INFECTION
     Route: 065
     Dates: start: 20091111
  4. SEROQUEL [Concomitant]
  5. DIOVAN [Concomitant]
  6. SYNTHROID [Concomitant]
  7. PREMARIN [Concomitant]
  8. FOLIC ACID [Concomitant]
  9. B-12 VITAMIN [Concomitant]
  10. ACIPHEX [Concomitant]
  11. LIBRAX [Concomitant]
  12. LITHIUM CARBONATE [Concomitant]

REACTIONS (2)
  - DIZZINESS [None]
  - DRUG INTERACTION [None]
